FAERS Safety Report 8417896 (Version 5)
Quarter: 2013Q3

REPORT INFORMATION
  Report Type: Spontaneous
  Country: US (occurrence: US)
  Receive Date: 20120221
  Receipt Date: 20130828
  Transmission Date: 20140515
  Serious: Yes (Death, Hospitalization)
  Sender: FDA-Public Use
  Company Number: US-B.I. PHARMACEUTICALS,INC./RIDGEFIELD-2012-BP-03123BP

PATIENT
  Age: 87 Year
  Sex: Male
  Weight: 90 kg

DRUGS (9)
  1. PRADAXA [Suspect]
     Indication: ATRIAL FIBRILLATION
     Dosage: 300 MG
     Route: 048
     Dates: start: 20111229, end: 20111231
  2. ZOCOR [Concomitant]
     Indication: CARDIAC ENZYMES
  3. ASPIRIN [Concomitant]
  4. ZOSYN [Concomitant]
  5. ALBUTEROL [Concomitant]
  6. ATROVENT [Concomitant]
  7. ENALAPRIL [Concomitant]
  8. TYLENOL COLD [Concomitant]
  9. VITAMIN E [Concomitant]

REACTIONS (17)
  - Cardio-respiratory arrest [Fatal]
  - Anaemia [Fatal]
  - Rectal haemorrhage [Fatal]
  - Gastrointestinal haemorrhage [Fatal]
  - Asthenia [Unknown]
  - Disorientation [Unknown]
  - Unresponsive to stimuli [Unknown]
  - Feeling abnormal [Unknown]
  - Discomfort [Unknown]
  - Abdominal pain upper [Unknown]
  - Diarrhoea haemorrhagic [Unknown]
  - Frustration [Unknown]
  - Pain [Unknown]
  - Nervousness [Unknown]
  - Malaise [Unknown]
  - Dehydration [Unknown]
  - Discomfort [Unknown]
